FAERS Safety Report 10612228 (Version 2)
Quarter: 2014Q4

REPORT INFORMATION
  Report Type: Spontaneous
  Country: US (occurrence: US)
  Receive Date: 20141127
  Receipt Date: 20141218
  Transmission Date: 20150529
  Serious: Yes (Hospitalization, Other)
  Sender: FDA-Public Use
  Company Number: US-AMGEN-USASP2014091216

PATIENT
  Age: 61 Year
  Sex: Female
  Weight: 79.77 kg

DRUGS (3)
  1. HUMIRA [Suspect]
     Active Substance: ADALIMUMAB
     Indication: PRODUCT USED FOR UNKNOWN INDICATION
     Dosage: UNK
     Route: 065
  2. CLINORIL [Concomitant]
     Active Substance: SULINDAC
     Indication: ARTHRALGIA
     Dosage: 200 MG, BID
     Route: 048
  3. ENBREL [Suspect]
     Active Substance: ETANERCEPT
     Indication: RHEUMATOID ARTHRITIS
     Dosage: 50 MG, QWK
     Route: 065
     Dates: start: 20030410

REACTIONS (7)
  - Spinal fusion surgery [Not Recovered/Not Resolved]
  - Squamous cell carcinoma of the tongue [Recovered/Resolved]
  - Rheumatoid arthritis [Recovered/Resolved]
  - Tooth disorder [Recovered/Resolved]
  - Drug ineffective [Recovered/Resolved]
  - Injection site pain [Not Recovered/Not Resolved]
  - Stomatitis [Recovered/Resolved]
